FAERS Safety Report 6623963-2 (Version None)
Quarter: 2010Q1

REPORT INFORMATION
  Report Type: 
  Country: None (occurrence: None)
  Receive Date: 20100304
  Receipt Date: 20100222
  Transmission Date: 20100710
  Serious: Yes (Death, Hospitalization, Disabling)
  Sender: FDA-Public Use
  Company Number: 2007-01810

PATIENT
  Age: 58 Year
  Sex: Female
  Weight: 54 kg

DRUGS (8)
  1. VELCADE [Suspect]
     Indication: MULTIPLE MYELOMA
     Dosage: 2.10  MG, INTRAVENOUS
     Route: 042
     Dates: start: 20070424, end: 20070522
  2. DEXAMETHASONE TAB [Suspect]
     Indication: MULTIPLE MYELOMA
     Dosage: 32 MG, INTRAVENOUS
     Route: 042
     Dates: start: 20070424, end: 20070522
  3. ACYCLOVIR [Concomitant]
  4. NAUZELIN (DOMPERIDONE) [Concomitant]
  5. LENDORM [Concomitant]
  6. GASMOTIN (MOSAPRIDE CITRATE) [Concomitant]
  7. ALLOPURINOL [Concomitant]
  8. ROHYPNOL (FLUNITRAZEPAM) [Concomitant]

REACTIONS (17)
  - ANAEMIA [None]
  - BLOOD LACTATE DEHYDROGENASE INCREASED [None]
  - BLOOD UREA INCREASED [None]
  - COAGULATION TEST ABNORMAL [None]
  - CONSTIPATION [None]
  - HYPOCALCAEMIA [None]
  - HYPOCHLORAEMIA [None]
  - HYPOKALAEMIA [None]
  - HYPONATRAEMIA [None]
  - HYPOPHAGIA [None]
  - INITIAL INSOMNIA [None]
  - MALIGNANT NEOPLASM PROGRESSION [None]
  - NEUROPATHY PERIPHERAL [None]
  - NEUTROPHIL COUNT DECREASED [None]
  - TUMOUR LYSIS SYNDROME [None]
  - VOMITING [None]
  - WHITE BLOOD CELL COUNT DECREASED [None]
